FAERS Safety Report 8090745-7 (Version None)
Quarter: 2012Q1

REPORT INFORMATION
  Report Type: 
  Country: None (occurrence: None)
  Receive Date: 20120124
  Receipt Date: 20120118
  Transmission Date: 20120608
  Serious: Yes (Hospitalization)
  Sender: FDA-Public Use
  Company Number: 2011SP000235

PATIENT
  Age: 40 Year
  Sex: Female
  Weight: 85 kg

DRUGS (2)
  1. TEMODAL [Suspect]
     Indication: GLIOBLASTOMA
     Dosage: 150 MG; QD; PO, 300 MG; QD; PO
     Route: 048
     Dates: end: 20101214
  2. TEMODAL [Suspect]
     Indication: GLIOBLASTOMA
     Dosage: 150 MG; QD; PO, 300 MG; QD; PO
     Route: 048
     Dates: start: 20100630, end: 20101126

REACTIONS (5)
  - GLIOBLASTOMA [None]
  - WOUND DEHISCENCE [None]
  - SKIN INFECTION [None]
  - NEOPLASM PROGRESSION [None]
  - SURGERY [None]
